FAERS Safety Report 21715953 (Version 2)
Quarter: 2022Q4

REPORT INFORMATION
  Report Type: Spontaneous
  Country: US (occurrence: US)
  Receive Date: 20221212
  Receipt Date: 20221213
  Transmission Date: 20230112
  Serious: No
  Sender: FDA-Public Use
  Company Number: US-002147023-NVSC2022US287251

PATIENT
  Sex: Female

DRUGS (1)
  1. LATANOPROST [Suspect]
     Active Substance: LATANOPROST
     Indication: Product used for unknown indication
     Dosage: UNK , QD (QD (EVERY NIGHT BEFORE BED)
     Route: 065

REACTIONS (4)
  - Accidental exposure to product [Unknown]
  - Peripheral swelling [Unknown]
  - Inflammation [Unknown]
  - Product container issue [Unknown]
